FAERS Safety Report 21783729 (Version 3)
Quarter: 2023Q1

REPORT INFORMATION
  Report Type: Spontaneous
  Country: US (occurrence: US)
  Receive Date: 20221227
  Receipt Date: 20230117
  Transmission Date: 20230418
  Serious: No
  Sender: FDA-Public Use
  Company Number: US-PFIZER INC-202201388565

PATIENT
  Age: 91 Year
  Sex: Female
  Weight: 56.689 kg

DRUGS (2)
  1. VYNDAMAX [Suspect]
     Active Substance: TAFAMIDIS
     Indication: Cardiac failure
     Dosage: 61 MG, 1X/DAY (IN MORNING )
     Route: 048
     Dates: start: 202107
  2. VYNDAMAX [Suspect]
     Active Substance: TAFAMIDIS
     Dosage: 61 MG, 1X/DAY
     Route: 048

REACTIONS (6)
  - Dry mouth [Unknown]
  - Hypoacusis [Unknown]
  - Fluid intake reduced [Unknown]
  - Dehydration [Unknown]
  - Communication disorder [Unknown]
  - Off label use [Unknown]
